FAERS Safety Report 6022657-4 (Version None)
Quarter: 2008Q4

REPORT INFORMATION
  Report Type: 
  Country: None (occurrence: None)
  Receive Date: 20081230
  Receipt Date: 20080712
  Transmission Date: 20090506
  Serious: No
  Sender: FDA-Public Use
  Company Number: US-BAYER-200813054BCC

PATIENT
  Age: 8 Year
  Sex: Female
  Weight: 29 kg

DRUGS (1)
  1. ALEVE [Suspect]
     Indication: HEADACHE
     Route: 048
     Dates: start: 20080712

REACTIONS (2)
  - ABDOMINAL PAIN UPPER [None]
  - VOMITING [None]
